FAERS Safety Report 14610800 (Version 1)
Quarter: 2018Q1

REPORT INFORMATION
  Report Type: Spontaneous
  Country: CN (occurrence: CN)
  Receive Date: 20180308
  Receipt Date: 20180308
  Transmission Date: 20180509
  Serious: Yes (Life-Threatening, Hospitalization, Other)
  Sender: FDA-Public Use
  Company Number: CN-AXELLIA-001444

PATIENT
  Age: 55 Year
  Sex: Male

DRUGS (6)
  1. FLUCONAZOLE. [Concomitant]
     Active Substance: FLUCONAZOLE
     Indication: ANTI-INFECTIVE THERAPY
  2. PIPERACILLIN [Concomitant]
     Active Substance: PIPERACILLIN
     Indication: STAPHYLOCOCCAL INFECTION
     Dosage: 1 G, Q 12 H
  3. VANCOMYCIN [Suspect]
     Active Substance: VANCOMYCIN
     Indication: STAPHYLOCOCCAL INFECTION
  4. ORNIDAZOLE [Concomitant]
     Active Substance: ORNIDAZOLE
     Indication: ANTI-INFECTIVE THERAPY
  5. VANCOMYCIN [Suspect]
     Active Substance: VANCOMYCIN
     Indication: STAPHYLOCOCCAL INFECTION
  6. SULBACTAM [Concomitant]
     Active Substance: SULBACTAM
     Indication: STAPHYLOCOCCAL INFECTION
     Dosage: 1 G, Q 12 H

REACTIONS (1)
  - Treatment failure [Unknown]
